FAERS Safety Report 7506035-4 (Version None)
Quarter: 2011Q2

REPORT INFORMATION
  Report Type: 
  Country: None (occurrence: None)
  Receive Date: 20110526
  Receipt Date: 20110517
  Transmission Date: 20111010
  Serious: Yes (Other)
  Sender: FDA-Public Use
  Company Number: US-ROCHE-760399

PATIENT
  Sex: Male
  Weight: 86.2 kg

DRUGS (1)
  1. ACCUTANE [Suspect]
     Indication: ACNE
     Route: 065
     Dates: start: 20020306, end: 20020901

REACTIONS (10)
  - BLOOD TRIGLYCERIDES INCREASED [None]
  - SUICIDAL IDEATION [None]
  - ARTHRALGIA [None]
  - HEADACHE [None]
  - STRESS [None]
  - LIP DRY [None]
  - INFLAMMATORY BOWEL DISEASE [None]
  - COLITIS ULCERATIVE [None]
  - PERIRECTAL ABSCESS [None]
  - IRRITABLE BOWEL SYNDROME [None]
